FAERS Safety Report 7373779-7 (Version None)
Quarter: 2011Q1

REPORT INFORMATION
  Report Type: 
  Country: None (occurrence: None)
  Receive Date: 20110315
  Receipt Date: 20110307
  Transmission Date: 20110831
  Serious: Yes (Hospitalization)
  Sender: FDA-Public Use
  Company Number: 2011SP010740

PATIENT
  Age: 81 Year
  Sex: Female

DRUGS (6)
  1. REFLEX (MIRTAZAPINE /01293201/) [Suspect]
     Indication: DEPRESSION
     Dosage: 15 MG;QD;PO; 30;MG;QD;PO
     Route: 048
  2. DONEPEZIL HYDROCHLORIDE [Concomitant]
  3. QUETIAPINE FUMARATE [Concomitant]
  4. ZOPICLONE [Concomitant]
  5. CHINESE HERBAL MEDICINE [Concomitant]
  6. TRIAZOLAM [Concomitant]

REACTIONS (15)
  - DEMENTIA WITH LEWY BODIES [None]
  - PERSECUTORY DELUSION [None]
  - INSOMNIA [None]
  - ATTENTION DEFICIT/HYPERACTIVITY DISORDER [None]
  - GAIT DISTURBANCE [None]
  - HALLUCINATION, VISUAL [None]
  - ANXIETY [None]
  - TREMOR [None]
  - AGITATION [None]
  - DEPRESSION [None]
  - SLEEP DISORDER [None]
  - MEMORY IMPAIRMENT [None]
  - COGNITIVE DISORDER [None]
  - DELUSION [None]
  - MUSCLE RIGIDITY [None]
